FAERS Safety Report 6711619-7 (Version None)
Quarter: 2010Q2

REPORT INFORMATION
  Report Type: 
  Country: None (occurrence: None)
  Receive Date: 20100505
  Receipt Date: 20100502
  Transmission Date: 20101027
  Serious: Yes (Death)
  Sender: FDA-Public Use
  Company Number: PHHY2010CA27490

PATIENT
  Sex: Female
  Weight: 84.5 kg

DRUGS (4)
  1. EXELON [Suspect]
     Indication: DEMENTIA ALZHEIMER'S TYPE
     Dosage: 10
     Route: 062
     Dates: start: 20100218
  2. ROCEPHIN [Concomitant]
  3. GENTAMICIN [Concomitant]
  4. REGULAR INSULIN [Concomitant]

REACTIONS (5)
  - GASTROENTERITIS CLOSTRIDIAL [None]
  - PYELONEPHRITIS [None]
  - SEPSIS [None]
  - SEPTIC SHOCK [None]
  - URINARY TRACT INFECTION [None]
